FAERS Safety Report 4723733-6 (Version None)
Quarter: 2005Q3

REPORT INFORMATION
  Report Type: 
  Country: None (occurrence: None)
  Receive Date: 20050725
  Receipt Date: 20050318
  Transmission Date: 20060218
  Serious: Yes (Hospitalization)
  Sender: FDA-Public Use
  Company Number: KP-NOVOPROD-244195

PATIENT
  Age: 70 Year
  Sex: Male
  Weight: 69 kg

DRUGS (5)
  1. NOVONORM [Suspect]
     Indication: DIABETES MELLITUS NON-INSULIN-DEPENDENT
     Dosage: 6 MG, TID
     Route: 048
     Dates: start: 20040119, end: 20040119
  2. NOVONORM [Suspect]
     Dosage: 1.5 MG, TID
     Route: 048
     Dates: start: 20040126, end: 20040209
  3. DICHLOZID [Concomitant]
     Dosage: 25 G, QD
     Route: 048
     Dates: start: 20040204
  4. BETALOC [Concomitant]
     Dosage: 750 MG, QD
     Route: 048
     Dates: start: 20040121
  5. TELMISARTAN [Concomitant]
     Dosage: 80 MG, QD
     Route: 048
     Dates: start: 20040204

REACTIONS (2)
  - BLOOD GLUCOSE INCREASED [None]
  - FEMUR FRACTURE [None]
